FAERS Safety Report 14271262 (Version 4)
Quarter: 2018Q2

REPORT INFORMATION
  Report Type: Spontaneous
  Country: ES (occurrence: ES)
  Receive Date: 20171211
  Receipt Date: 20180411
  Transmission Date: 20180711
  Serious: Yes (Other)
  Sender: FDA-Public Use
  Company Number: ES-AMGEN-ESPSP2017181023

PATIENT
  Age: 102 Year
  Sex: Male

DRUGS (3)
  1. ARANESP [Suspect]
     Active Substance: DARBEPOETIN ALFA
     Indication: RED BLOOD CELL COUNT DECREASED
     Dosage: UNK
     Route: 065
     Dates: start: 201610, end: 201711
  2. NEUPOGEN [Suspect]
     Active Substance: FILGRASTIM
     Indication: EOSINOPHIL COUNT DECREASED
     Dosage: UNK
     Route: 065
     Dates: start: 20171128, end: 201711
  3. ARANESP [Suspect]
     Active Substance: DARBEPOETIN ALFA
     Indication: HAEMOGLOBIN DECREASED

REACTIONS (6)
  - Muscle rigidity [Recovered/Resolved]
  - Fall [Unknown]
  - Asthenia [Recovered/Resolved]
  - Blindness [Recovered/Resolved]
  - Gait inability [Recovered/Resolved]
  - Eosinophil count decreased [Recovered/Resolved]

NARRATIVE: CASE EVENT DATE: 2017
